FAERS Safety Report 12405309 (Version 1)
Quarter: 2016Q2

REPORT INFORMATION
  Report Type: Spontaneous
  Country: US (occurrence: None)
  Receive Date: 20160525
  Receipt Date: 20160525
  Transmission Date: 20160815
  Serious: Yes (Death, Hospitalization)
  Sender: FDA-Public Use
  Company Number: None

PATIENT
  Age: 19 Year
  Sex: Female
  Weight: 50 kg

DRUGS (4)
  1. METHOTREXATE [Suspect]
     Active Substance: METHOTREXATE
     Dates: end: 20160504
  2. ONCASPAR [Suspect]
     Active Substance: PEGASPARGASE
     Dates: end: 20160423
  3. DAUNORUBICIN [Suspect]
     Active Substance: DAUNORUBICIN
     Dates: end: 20160513
  4. VINCRISTINE SULFATE. [Suspect]
     Active Substance: VINCRISTINE SULFATE
     Dates: end: 20160413

REACTIONS (29)
  - Delirium [None]
  - Acute respiratory failure [None]
  - Hyperprolactinaemia [None]
  - Disseminated intravascular coagulation [None]
  - Septic shock [None]
  - Pneumonia fungal [None]
  - Pain [None]
  - Pleural effusion [None]
  - Hyperglycaemia [None]
  - Anxiety [None]
  - Hypertension [None]
  - Hyperbilirubinaemia [None]
  - Intestinal ischaemia [None]
  - Pancreatitis [None]
  - Gastrointestinal haemorrhage [None]
  - Azotaemia [None]
  - Ileus [None]
  - Pancytopenia [None]
  - Sinusitis [None]
  - Constipation [None]
  - Cardiac failure [None]
  - Fluid overload [None]
  - Transaminases increased [None]
  - Bacteraemia [None]
  - Acute kidney injury [None]
  - Hypertriglyceridaemia [None]
  - Hypotension [None]
  - Tumour lysis syndrome [None]
  - Hyperammonaemia [None]

NARRATIVE: CASE EVENT DATE: 20160405
